FAERS Safety Report 7458137-9 (Version None)
Quarter: 2011Q2

REPORT INFORMATION
  Report Type: 
  Country: None (occurrence: None)
  Receive Date: 20110504
  Receipt Date: 20110426
  Transmission Date: 20111010
  Serious: Yes (Other)
  Sender: FDA-Public Use
  Company Number: PHHY2011US03058

PATIENT
  Sex: Male

DRUGS (2)
  1. GILENYA [Suspect]
     Indication: RELAPSING-REMITTING MULTIPLE SCLEROSIS
     Dosage: 0.5 MG, QD
     Route: 048
     Dates: start: 20110107
  2. UROXATRAL [Concomitant]
     Dosage: UNK UKN, UNK

REACTIONS (11)
  - CHILLS [None]
  - NASAL CONGESTION [None]
  - UPPER RESPIRATORY TRACT INFECTION [None]
  - DYSPNOEA [None]
  - COUGH [None]
  - HEADACHE [None]
  - PAIN [None]
  - HYPOAESTHESIA [None]
  - SINUS HEADACHE [None]
  - NIGHT SWEATS [None]
  - PYREXIA [None]
